FAERS Safety Report 8416586-6 (Version None)
Quarter: 2012Q2

REPORT INFORMATION
  Report Type: 
  Country: None (occurrence: None)
  Receive Date: 20120606
  Receipt Date: 20120604
  Transmission Date: 20120825
  Serious: Yes (Other)
  Sender: FDA-Public Use
  Company Number: US-ROCHE-1044333

PATIENT
  Sex: Male

DRUGS (1)
  1. ZELBORAF [Suspect]
     Indication: PRODUCT USED FOR UNKNOWN INDICATION

REACTIONS (13)
  - WEIGHT DECREASED [None]
  - ACROCHORDON [None]
  - MELANOCYTIC NAEVUS [None]
  - RASH [None]
  - RASH ERYTHEMATOUS [None]
  - ASTHENIA [None]
  - DECREASED APPETITE [None]
  - SQUAMOUS CELL CARCINOMA [None]
  - NEOPLASM [None]
  - FATIGUE [None]
  - SUNBURN [None]
  - NAUSEA [None]
  - ARTHRALGIA [None]
